FAERS Safety Report 5059904-1 (Version None)
Quarter: 2006Q3

REPORT INFORMATION
  Report Type: 
  Country: None (occurrence: None)
  Receive Date: 20060724
  Receipt Date: 20060303
  Transmission Date: 20061208
  Serious: Yes (Death)
  Sender: FDA-Public Use
  Company Number: US-NOVOPROD-251312

PATIENT
  Age: 24 Year
  Sex: Male
  Weight: 120 kg

DRUGS (5)
  1. NOVOSEVEN [Suspect]
     Indication: TRAUMATIC HAEMORRHAGE
     Dosage: 100 UG/KG, UNK
     Route: 042
     Dates: start: 20060225, end: 20060225
  2. EPINEPHRINE [Concomitant]
     Indication: CARDIAC ARREST
     Dosage: UNKNOWN
     Dates: start: 20060225, end: 20060225
  3. BLOOD CELLS, PACKED HUMAN [Concomitant]
     Indication: HAEMORRHAGE
     Dosage: 25 U, SINGLE
     Route: 042
     Dates: start: 20060225, end: 20060225
  4. LEVOPHED [Concomitant]
     Indication: HYPOTENSION
     Dosage: UNKNOWN
     Route: 042
     Dates: start: 20060225, end: 20060225
  5. DOPAMINE [Concomitant]
     Indication: HYPOTENSION
     Dosage: UNKNOWN
     Route: 042
     Dates: start: 20060225, end: 20060225

REACTIONS (1)
  - DRUG INEFFECTIVE [None]
